FAERS Safety Report 8581212-2 (Version None)
Quarter: 2012Q3

REPORT INFORMATION
  Report Type: 
  Country: None (occurrence: None)
  Receive Date: 20120809
  Receipt Date: 20120725
  Transmission Date: 20120928
  Serious: Yes (Other)
  Sender: FDA-Public Use
  Company Number: CA-JNJFOC-20120715258

PATIENT
  Sex: Female
  Weight: 88 kg

DRUGS (3)
  1. METHOTREXATE [Concomitant]
     Route: 058
  2. REMICADE [Suspect]
     Indication: RHEUMATOID ARTHRITIS
     Dosage: 0, 2, 6 AND 8 WEEKS  FIRST INFUSION
     Route: 042
     Dates: start: 20120716
  3. ARAVA [Concomitant]
     Route: 048

REACTIONS (2)
  - WRIST FRACTURE [None]
  - FALL [None]
